FAERS Safety Report 14153932 (Version 1)
Quarter: 2017Q4

REPORT INFORMATION
  Report Type: Spontaneous
  Country: JP (occurrence: JP)
  Receive Date: 20171102
  Receipt Date: 20171102
  Transmission Date: 20180321
  Serious: Yes (Hospitalization)
  Sender: FDA-Public Use
  Company Number: JP-PFIZER INC-2017324467

PATIENT
  Age: 77 Year
  Sex: Male
  Weight: 53 kg

DRUGS (14)
  1. PREDNISOLONE. [Concomitant]
     Active Substance: PREDNISOLONE
     Dosage: 4 MG, DAILY
     Route: 048
  2. ENALAPRIL MALEATE. [Concomitant]
     Active Substance: ENALAPRIL MALEATE
     Dosage: 1 TABLET, DAILY
     Route: 048
     Dates: end: 20170719
  3. FOLIAMIN [Concomitant]
     Active Substance: FOLIC ACID
     Dosage: UNK
     Route: 048
     Dates: start: 20120517, end: 20170719
  4. PLAVIX [Concomitant]
     Active Substance: CLOPIDOGREL BISULFATE
     Dosage: 75 MG, 1X/DAY
     Route: 048
     Dates: end: 20170716
  5. RHEUMATREX [Suspect]
     Active Substance: METHOTREXATE SODIUM
     Indication: RHEUMATOID ARTHRITIS
     Dosage: 12 MG, WEEKLY
     Route: 048
     Dates: end: 20170719
  6. FAMOTIDINE. [Concomitant]
     Active Substance: FAMOTIDINE
     Dosage: 20 MG, 2X/DAY
     Route: 048
     Dates: end: 20170719
  7. ROHYPNOL [Concomitant]
     Active Substance: FLUNITRAZEPAM
     Dosage: 1 TABLET, DAILY
     Route: 048
     Dates: end: 20170716
  8. REBAMIPIDE [Concomitant]
     Active Substance: REBAMIPIDE
     Dosage: 100 MG, 3X/DAY
     Route: 048
     Dates: end: 20170716
  9. DICLOFENAC SODIUM. [Concomitant]
     Active Substance: DICLOFENAC SODIUM
     Dosage: 37.5 MG, 2X/DAY
     Route: 048
     Dates: end: 20170716
  10. AMLODIPINE [Concomitant]
     Active Substance: AMLODIPINE BESYLATE
     Dosage: 5 MG, 1X/DAY
     Route: 048
     Dates: end: 20170719
  11. LIMAPROST ALFADEX [Concomitant]
     Active Substance: LIMAPROST
     Dosage: 5 UG, 3X/DAY
     Route: 048
     Dates: end: 20170716
  12. SHAKUYAKUKANZOTO [Concomitant]
     Active Substance: HERBALS
     Dosage: 3 DF (PACKAGES), DAILY
     Route: 048
     Dates: start: 20150709, end: 20170716
  13. PRAMIEL [Concomitant]
     Dosage: 5 MG, 1X/DAY
     Route: 048
     Dates: start: 20140530, end: 20170716
  14. TRAMAL [Concomitant]
     Active Substance: TRAMADOL
     Dosage: 25 MG, DAILY
     Route: 048
     Dates: start: 20140530, end: 20170719

REACTIONS (2)
  - Disseminated intravascular coagulation [Recovering/Resolving]
  - Pancytopenia [Recovering/Resolving]

NARRATIVE: CASE EVENT DATE: 20170716
